FAERS Safety Report 8291466-8 (Version None)
Quarter: 2012Q2

REPORT INFORMATION
  Report Type: 
  Country: None (occurrence: None)
  Receive Date: 20120417
  Receipt Date: 20120413
  Transmission Date: 20120825
  Serious: Yes (Other)
  Sender: FDA-Public Use
  Company Number: US-PFIZER INC-2012092875

PATIENT
  Sex: Male

DRUGS (2)
  1. VIAGRA [Suspect]
     Indication: ERECTILE DYSFUNCTION
     Dosage: 100 MG, AS NEEDED
     Route: 048
     Dates: start: 20120314
  2. VIAGRA [Suspect]
     Dosage: UNK
     Route: 048

REACTIONS (3)
  - PENILE SWELLING [None]
  - ERECTILE DYSFUNCTION [None]
  - PENIS DISORDER [None]
